FAERS Safety Report 8838783 (Version 1)
Quarter: 2012Q4

REPORT INFORMATION
  Report Type: 
  Country: CA (occurrence: CA)
  Receive Date: 20121014
  Receipt Date: 20121014
  Transmission Date: 20130627
  Serious: Yes (Death, Other)
  Sender: FDA-Public Use
  Company Number: PHMT2007CA02025

PATIENT
  Sex: Male

DRUGS (1)
  1. SANDOSTATIN LAR [Suspect]
     Indication: HEPATIC NEOPLASM MALIGNANT
     Dosage: 30 mg, every 4 weeks
     Dates: start: 20070709

REACTIONS (13)
  - Death [Fatal]
  - Gastric haemorrhage [Unknown]
  - Haematochezia [Unknown]
  - Haemorrhage [Unknown]
  - Haemoglobin decreased [Unknown]
  - Blood pressure decreased [Unknown]
  - Pain [Unknown]
  - Weight decreased [Unknown]
  - Fatigue [Unknown]
  - Blood glucose increased [Unknown]
  - Muscle atrophy [Unknown]
  - Nausea [Unknown]
  - Jaundice [Unknown]
